FAERS Safety Report 6211494-3 (Version None)
Quarter: 2009Q2

REPORT INFORMATION
  Report Type: 
  Country: None (occurrence: None)
  Receive Date: 20090528
  Receipt Date: 20090518
  Transmission Date: 20091009
  Serious: Yes (Death)
  Sender: FDA-Public Use
  Company Number: 2009AL000701

PATIENT
  Age: 35 Year
  Sex: Male

DRUGS (6)
  1. DIGOXIN [Suspect]
     Dosage: 0.25MG, DAILY, PO
     Route: 048
  2. COUMADIN [Concomitant]
  3. COREG [Concomitant]
  4. LASIX [Concomitant]
  5. LISINOPRIL [Concomitant]
  6. SPIRONOLACTONE [Concomitant]

REACTIONS (10)
  - AORTIC DISORDER [None]
  - ATRIAL FIBRILLATION [None]
  - BLOOD PRESSURE DECREASED [None]
  - EJECTION FRACTION DECREASED [None]
  - HAEMOPTYSIS [None]
  - INCORRECT DOSE ADMINISTERED [None]
  - NAUSEA [None]
  - PULMONARY OEDEMA [None]
  - RESPIRATORY DISTRESS [None]
  - VOMITING [None]
